FAERS Safety Report 7227319-3 (Version None)
Quarter: 2011Q1

REPORT INFORMATION
  Report Type: 
  Country: None (occurrence: None)
  Receive Date: 20110114
  Receipt Date: 20110110
  Transmission Date: 20110831
  Serious: Yes (Other)
  Sender: FDA-Public Use
  Company Number: B0693596A

PATIENT
  Sex: Female

DRUGS (1)
  1. NEODUPLAMOX [Suspect]
     Indication: SCARLET FEVER
     Route: 065
     Dates: start: 20101223, end: 20110111

REACTIONS (2)
  - ASTHENIA [None]
  - ENTERITIS [None]
